FAERS Safety Report 6163152-1 (Version None)
Quarter: 2009Q2

REPORT INFORMATION
  Report Type: 
  Country: None (occurrence: None)
  Receive Date: 20090420
  Receipt Date: 20090406
  Transmission Date: 20091009
  Serious: Yes (Hospitalization)
  Sender: FDA-Public Use
  Company Number: 8034046

PATIENT
  Sex: Female

DRUGS (8)
  1. KEPPRA [Suspect]
     Indication: CONVULSION
     Dosage: 0.5 DF /D
     Dates: start: 20080620, end: 20080621
  2. KEPPRA [Suspect]
     Indication: CONVULSION
     Dosage: 2 DF /D
     Dates: start: 20080622, end: 20080601
  3. KEPPRA [Suspect]
     Indication: CONVULSION
     Dosage: 1000 MG /D PO
     Route: 048
     Dates: end: 20080101
  4. LAMICTAL [Concomitant]
  5. REPLIVA [Concomitant]
  6. CARBATROL [Concomitant]
  7. TYLENOL [Concomitant]
  8. ZOFRAN [Concomitant]

REACTIONS (7)
  - DIZZINESS [None]
  - DRUG EXPOSURE DURING PREGNANCY [None]
  - GRAND MAL CONVULSION [None]
  - HALLUCINATION [None]
  - MOOD SWINGS [None]
  - PARTIAL SEIZURES [None]
  - PREMATURE LABOUR [None]
